FAERS Safety Report 9702254 (Version 1)
Quarter: 2013Q4

REPORT INFORMATION
  Report Type: Spontaneous
  Country: NL (occurrence: NL)
  Receive Date: 20131121
  Receipt Date: 20131121
  Transmission Date: 20140711
  Serious: Yes (Other)
  Sender: FDA-Public Use
  Company Number: NL-TEVA-445001ISR

PATIENT
  Age: 71 Year
  Sex: Female
  Weight: 74 kg

DRUGS (1)
  1. TAMOXIFEN [Suspect]
     Indication: BREAST CANCER
     Dosage: 20 MILLIGRAM DAILY; 1 TIME A DAY 1 PIECE
     Route: 048
     Dates: start: 20120607, end: 20120622

REACTIONS (2)
  - Macular degeneration [Recovered/Resolved with Sequelae]
  - Condition aggravated [Recovered/Resolved with Sequelae]
